FAERS Safety Report 8229661-6 (Version None)
Quarter: 2012Q1

REPORT INFORMATION
  Report Type: 
  Country: None (occurrence: None)
  Receive Date: 20120322
  Receipt Date: 20120316
  Transmission Date: 20120608
  Serious: Yes (Other)
  Sender: FDA-Public Use
  Company Number: PHEH2012US000812

PATIENT
  Sex: Female
  Weight: 62.132 kg

DRUGS (8)
  1. MAXALT [Concomitant]
     Indication: MIGRAINE
     Dosage: 10 MG, UNK
     Route: 048
     Dates: start: 20101001
  2. GILENYA [Suspect]
     Dosage: 0.5 MG, QD
     Route: 048
     Dates: start: 20111114, end: 20111205
  3. PROVIGIL [Concomitant]
  4. IBUPROFEN (ADVIL) [Concomitant]
     Indication: MIGRAINE
     Dosage: 200 MG, UNK
     Route: 048
     Dates: start: 20101001
  5. GILENYA [Suspect]
     Indication: RELAPSING-REMITTING MULTIPLE SCLEROSIS
     Dosage: 0.5 MG, QD
     Route: 048
     Dates: start: 20110915
  6. FIORINAL [Concomitant]
     Indication: MIGRAINE
     Dates: start: 20000111
  7. GILENYA [Suspect]
     Dosage: 0.5 MG, QD
     Route: 048
     Dates: start: 20120229
  8. SUDAFED 12 HOUR [Concomitant]
     Indication: SINUSITIS
     Dates: start: 20111001

REACTIONS (6)
  - MONOCYTE COUNT INCREASED [None]
  - NEUTROPHIL COUNT INCREASED [None]
  - SINUS CONGESTION [None]
  - LEUKOPENIA [None]
  - GRANULOCYTE COUNT DECREASED [None]
  - LYMPHOPENIA [None]
